FAERS Safety Report 4497846-0 (Version None)
Quarter: 2004Q4

REPORT INFORMATION
  Report Type: 
  Country: None (occurrence: None)
  Receive Date: 20041110
  Receipt Date: 20041015
  Transmission Date: 20050328
  Serious: Yes (Hospitalization, Other)
  Sender: FDA-Public Use
  Company Number: JP-GLAXOSMITHKLINE-B0349010A

PATIENT
  Age: 71 Year
  Sex: Female

DRUGS (6)
  1. FLUTICASONE PROPIONATE [Suspect]
     Indication: ASTHMA
     Dosage: 400MCG THREE TIMES PER DAY
     Route: 055
     Dates: end: 20040920
  2. CYANOCOBALAMIN [Concomitant]
     Indication: NEUROPATHY PERIPHERAL
     Dosage: 1500MCG PER DAY
     Route: 048
  3. NEUER [Concomitant]
     Indication: GASTRITIS
     Dosage: 600MG PER DAY
     Route: 048
  4. ADETPHOS [Concomitant]
     Indication: MENIERE'S DISEASE
     Dosage: 180MG PER DAY
     Route: 048
  5. MYSLEE [Concomitant]
     Indication: INSOMNIA
     Dosage: 5MG PER DAY
     Route: 048
  6. LUVOX [Concomitant]
     Indication: DEPRESSION
     Dosage: 50MG PER DAY
     Route: 048

REACTIONS (5)
  - ABASIA [None]
  - ADRENAL INSUFFICIENCY [None]
  - MUSCULAR WEAKNESS [None]
  - MYOPATHY [None]
  - MYOPATHY STEROID [None]
